FAERS Safety Report 4326537-1 (Version None)
Quarter: 2004Q1

REPORT INFORMATION
  Report Type: 
  Country: None (occurrence: None)
  Receive Date: 20040325
  Receipt Date: 20031028
  Transmission Date: 20041129
  Serious: Yes (Hospitalization)
  Sender: FDA-Public Use
  Company Number: US047894

PATIENT
  Age: 59 Year
  Sex: Female

DRUGS (4)
  1. NEULASTA [Suspect]
     Indication: CHEMOTHERAPY
     Dosage: 6 MG, ONE TIME DOSE, SC
     Route: 058
     Dates: start: 20030830
  2. GEMCITABINE [Concomitant]
  3. DOXORUBICIN HYDROCHLORIDE [Concomitant]
  4. CISPLATIN [Concomitant]

REACTIONS (1)
  - FEBRILE NEUTROPENIA [None]
